FAERS Safety Report 8439338 (Version 2)
Quarter: 2013Q2

REPORT INFORMATION
  Report Type: Spontaneous
  Country: US (occurrence: None)
  Receive Date: 20120104
  Receipt Date: 20120508
  Transmission Date: 20140414
  Serious: Yes (Other)
  Sender: FDA-Public Use
  Company Number: 2011HGS-002852

PATIENT
  Age: 62 Year
  Sex: Female
  Weight: 45.81 kg

DRUGS (22)
  1. BENLYSTA [Suspect]
     Indication: SYSTEMIC LUPUS ERYTHEMATOSUS
     Dosage: 1 IN 2 WK
     Route: 041
     Dates: start: 20111107
  2. BENLYSTA [Suspect]
     Dosage: 1 IN 2 WK
     Route: 041
     Dates: start: 20111107
  3. HYDROCHLOROTHIAZIDE [Concomitant]
  4. LASIX [Concomitant]
  5. NEXIUM [Concomitant]
  6. ADDERALL XR (OBETROL /01345401/) (DEXAMFETAMINE SULFATE, AMFETAMINE SULFATE, DEXAMFETAMINE SACCHARATE, AMFETAMINE ASPARTATE ) [Concomitant]
  7. CRESTOR [Concomitant]
  8. ZANAFLEX (TIZANIDINE HYDROCHLORIDE) (TIZANIDINE HYDROCHLORIDE) [Concomitant]
  9. HEMAX (MULTIVITAMINS PLUS IRON) (FERROUS SULFATE, VITAMINS NOS) [Concomitant]
  10. TRAZODONE (TRAZODONE) (TRAZODONE) [Concomitant]
  11. GABAPENTIN [Concomitant]
  12. LIBRAX (LIBRAX/00033301//) (CHLORDIAZEPOXIDE HYDROCHLORIDE, CLIDINIUM BROMIDE) [Concomitant]
  13. BONIVA (IBANDRONATE SODIUM) (IBANDRONATE SODIUM) [Concomitant]
  14. CALTRATE [Concomitant]
  15. PREDNISONE [Concomitant]
  16. COENZYMEQ 10 (UBIDECARENONE) (UBIDECARENONE) [Concomitant]
  17. VITAMIN B 12 (CYANOCOBALAMIN) (CYANOCOBALAMIN) [Concomitant]
  18. VITAMIN D3 (COLECALCIFEROL) (COLECALCIFEROL) [Concomitant]
  19. FOLIC ACID [Concomitant]
  20. POTASSIUM GLUCONATE (POTASSIUM GULCONATE) (POTASSIUM GLUCONATE) [Concomitant]
  21. ZOFRAN [Concomitant]
  22. CENTRUM SILVER (CENTRUM SILVER/01292501/) (ASCORBIC ACID, TOCOPHERYL ACETATE, RETINOL, ZINC, CALCIUM, VITAMINS NOS, ,OMERA;S MPS. VOTA,OM B NOS) [Concomitant]

REACTIONS (4)
  - OEDEMA PERIPHERAL [None]
  - NAUSEA [None]
  - RASH [None]
  - PAIN IN EXTREMITY [None]
